FAERS Safety Report 6345514-2 (Version None)
Quarter: 2009Q3

REPORT INFORMATION
  Report Type: 
  Country: None (occurrence: None)
  Receive Date: 20090909
  Receipt Date: 20090907
  Transmission Date: 20100115
  Serious: Yes (Hospitalization)
  Sender: FDA-Public Use
  Company Number: IT-BRISTOL-MYERS SQUIBB COMPANY-14761597

PATIENT
  Age: 79 Year
  Sex: Male

DRUGS (2)
  1. COUMADIN [Suspect]
     Indication: ATRIAL FIBRILLATION
     Dosage: INTERRUPTED ON 09JUN09.
     Route: 048
     Dates: start: 20090608
  2. EPARINA [Suspect]
     Indication: ATRIAL FIBRILLATION
     Dosage: INTERRUPTED ON 10JUN09
     Route: 042
     Dates: start: 20090530

REACTIONS (4)
  - HAEMOGLOBIN DECREASED [None]
  - MUSCLE HAEMORRHAGE [None]
  - SPINAL DISORDER [None]
  - VISION BLURRED [None]
